FAERS Safety Report 8327131-8 (Version None)
Quarter: 2012Q2

REPORT INFORMATION
  Report Type: 
  Country: None (occurrence: None)
  Receive Date: 20120501
  Receipt Date: 20120424
  Transmission Date: 20120825
  Serious: Yes (Other)
  Sender: FDA-Public Use
  Company Number: AU-AMGEN-AUSSP2012026187

PATIENT

DRUGS (7)
  1. NEUPOGEN [Suspect]
     Indication: NEUTROPENIA
     Dosage: 300 MUG, UNK
  2. DOXORUBICIN HCL [Concomitant]
     Indication: PSEUDOLYMPHOMA
     Dosage: UNK
  3. VINBLASTINE SULFATE [Concomitant]
     Indication: PSEUDOLYMPHOMA
  4. NEUPOGEN [Suspect]
     Dosage: 6 MG, ONE TIME DOSE
  5. BLEOMYCIN SULFATE [Concomitant]
     Indication: PSEUDOLYMPHOMA
  6. DACARBAZINE [Concomitant]
     Indication: PSEUDOLYMPHOMA
  7. NEUPOGEN [Suspect]
     Dosage: 480 MUG, QD

REACTIONS (2)
  - INTERSTITIAL LUNG DISEASE [None]
  - FEBRILE NEUTROPENIA [None]
